FAERS Safety Report 21204255 (Version 2)
Quarter: 2022Q3

REPORT INFORMATION
  Report Type: Report from Study
  Country: US (occurrence: US)
  Receive Date: 20220812
  Receipt Date: 20220825
  Transmission Date: 20221026
  Serious: No
  Sender: FDA-Public Use
  Company Number: US-ETON PHARMACEUTICALS, INC-2022ETO000178

PATIENT

DRUGS (1)
  1. ALKINDI SPRINKLE [Suspect]
     Active Substance: HYDROCORTISONE
     Indication: Adrenogenital syndrome
     Dosage: 2 MILLIGRAM, TID
     Route: 048
     Dates: start: 20220723, end: 202208

REACTIONS (2)
  - Incorrect dose administered [Unknown]
  - Infantile spitting up [Unknown]

NARRATIVE: CASE EVENT DATE: 20220101
